FAERS Safety Report 24325186 (Version 1)
Quarter: 2024Q3

REPORT INFORMATION
  Report Type: Report from Study
  Country: US (occurrence: US)
  Receive Date: 20240916
  Receipt Date: 20240916
  Transmission Date: 20241016
  Serious: Yes (Other)
  Sender: TAKEDA
  Company Number: US-TAKEDA-2024TUS061015

PATIENT
  Sex: Male
  Weight: 66.213 kg

DRUGS (1)
  1. MARIBAVIR [Suspect]
     Active Substance: MARIBAVIR
     Indication: Cytomegalovirus infection
     Dosage: 400 MILLIGRAM, BID
     Route: 048
     Dates: start: 20240606

REACTIONS (4)
  - Cytomegalovirus viraemia [Unknown]
  - Asthenia [Unknown]
  - Headache [Unknown]
  - Taste disorder [Unknown]
